FAERS Safety Report 4754138-X (Version None)
Quarter: 2005Q3

REPORT INFORMATION
  Report Type: 
  Country: None (occurrence: None)
  Receive Date: 20050825
  Receipt Date: 20050215
  Transmission Date: 20060218
  Serious: Yes (Other)
  Sender: FDA-Public Use
  Company Number: HQWYE407418FEB05

PATIENT
  Age: 4 Year
  Sex: Female
  Weight: 19.07 kg

DRUGS (4)
  1. CHILDREN'S ADVIL [Suspect]
     Indication: COUGH
     Dosage: 1.5 TSP 1X PER 1 DAY, ORAL
     Route: 048
     Dates: start: 20050211, end: 20050212
  2. CHILDREN'S ADVIL [Suspect]
     Indication: NASAL CONGESTION
     Dosage: 1.5 TSP 1X PER 1 DAY, ORAL
     Route: 048
     Dates: start: 20050211, end: 20050212
  3. CHILDREN'S ADVIL [Suspect]
     Indication: PYREXIA
     Dosage: 1.5 TSP 1X PER 1 DAY, ORAL
     Route: 048
     Dates: start: 20050211, end: 20050212
  4. CEFZIL [Concomitant]

REACTIONS (2)
  - OCULAR HYPERAEMIA [None]
  - SWELLING FACE [None]
